FAERS Safety Report 5431354-5 (Version None)
Quarter: 2007Q3

REPORT INFORMATION
  Report Type: 
  Country: None (occurrence: None)
  Receive Date: 20070830
  Receipt Date: 20070503
  Transmission Date: 20080115
  Serious: No
  Sender: FDA-Public Use
  Company Number: A0649874A

PATIENT
  Age: 53 Year
  Sex: Female

DRUGS (4)
  1. WELLBUTRIN XL [Suspect]
     Indication: ANXIETY
     Route: 048
     Dates: start: 20070303, end: 20070326
  2. NATURAL ESTROGEN [Concomitant]
  3. SINGULAIR [Concomitant]
  4. FLONASE [Concomitant]

REACTIONS (1)
  - ALOPECIA [None]
